FAERS Safety Report 8846890 (Version 2)
Quarter: 2012Q4

REPORT INFORMATION
  Report Type: 
  Country: US (occurrence: US)
  Receive Date: 20121018
  Receipt Date: 20121107
  Transmission Date: 20130627
  Serious: Yes (Other)
  Sender: FDA-Public Use
  Company Number: US-PFIZER INC-2012254648

PATIENT
  Age: 59 Year
  Sex: Female
  Weight: 76.19 kg

DRUGS (1)
  1. PREMARIN [Suspect]
     Indication: OESTROGEN REPLACEMENT THERAPY
     Dosage: 0.02 mg, daily
     Route: 048

REACTIONS (1)
  - Bladder disorder [Unknown]
